FAERS Safety Report 12284577 (Version 1)
Quarter: 2016Q2

REPORT INFORMATION
  Report Type: Spontaneous
  Country: US (occurrence: US)
  Receive Date: 20160420
  Receipt Date: 20160420
  Transmission Date: 20160815
  Serious: No
  Sender: FDA-Public Use
  Company Number: US-TEVA-644743USA

PATIENT
  Sex: Male
  Weight: 104.42 kg

DRUGS (1)
  1. PRAVASTATIN [Suspect]
     Active Substance: PRAVASTATIN\PRAVASTATIN SODIUM
     Indication: CORONARY ARTERY BYPASS
     Route: 065
     Dates: start: 20160116, end: 20160315

REACTIONS (6)
  - Muscular weakness [Unknown]
  - Pain in extremity [Unknown]
  - Muscle spasms [Unknown]
  - Product substitution issue [Unknown]
  - Arthralgia [Unknown]
  - Gait disturbance [Unknown]
